FAERS Safety Report 10209545 (Version 3)
Quarter: 2014Q2

REPORT INFORMATION
  Report Type: Report from Study
  Country: FR (occurrence: FR)
  Receive Date: 20140602
  Receipt Date: 20140604
  Transmission Date: 20141212
  Serious: Yes (Death)
  Sender: FDA-Public Use
  Company Number: FR-ROCHE-1405531

PATIENT
  Age: 45 Year
  Sex: Female

DRUGS (8)
  1. ZELBORAF [Suspect]
     Indication: METASTATIC MALIGNANT MELANOMA
     Route: 048
     Dates: start: 201302, end: 201402
  2. CACIT D3 [Concomitant]
     Indication: CALCIUM DEFICIENCY
     Route: 048
  3. TARDYFERON (FRANCE) [Concomitant]
     Indication: IRON DEFICIENCY
     Route: 048
  4. PREDNISOLONE [Concomitant]
     Route: 065
  5. ESOMEPRAZOLE [Concomitant]
     Indication: GASTROINTESTINAL ULCER
     Route: 048
  6. LOPERAMIDE [Concomitant]
     Route: 065
  7. URBANYL [Concomitant]
     Indication: ANXIETY
  8. DIFFU K [Concomitant]
     Indication: HYPOKALAEMIA

REACTIONS (1)
  - Disease progression [Fatal]
